FAERS Safety Report 4591798-0 (Version None)
Quarter: 2005Q1

REPORT INFORMATION
  Report Type: 
  Country: None (occurrence: None)
  Receive Date: 20050218
  Receipt Date: 20040119
  Transmission Date: 20050727
  Serious: Yes (Other)
  Sender: FDA-Public Use
  Company Number: 05GER0041

PATIENT
  Age: 61 Year
  Sex: Female

DRUGS (5)
  1. AGGRASTAT [Suspect]
     Indication: ACUTE CORONARY SYNDROME
  2. HEPARIN [Concomitant]
  3. ASPIRIN [Concomitant]
  4. CLOPIDOGREL BISULFATE [Concomitant]
  5. NITROGLYCERIN [Concomitant]

REACTIONS (12)
  - CHEST PAIN [None]
  - COLD SWEAT [None]
  - CORONARY ARTERY DISEASE [None]
  - CORONARY ARTERY STENOSIS [None]
  - HAEMOGLOBIN DECREASED [None]
  - HYPOTENSION [None]
  - NAUSEA [None]
  - POST PROCEDURAL COMPLICATION [None]
  - POST PROCEDURAL HAEMORRHAGE [None]
  - SPLENIC RUPTURE [None]
  - STENT OCCLUSION [None]
  - THROMBOSIS [None]
